FAERS Safety Report 6727482-4 (Version None)
Quarter: 2010Q2

REPORT INFORMATION
  Report Type: 
  Country: None (occurrence: None)
  Receive Date: 20100517
  Receipt Date: 20100506
  Transmission Date: 20101027
  Serious: Yes (Hospitalization, Other)
  Sender: FDA-Public Use
  Company Number: US-SANOFI-AVENTIS-2010SA026772

PATIENT
  Age: 62 Year
  Sex: Male
  Weight: 88.7 kg

DRUGS (14)
  1. LANTUS [Suspect]
     Indication: TYPE 2 DIABETES MELLITUS
     Dosage: DOSE:16 UNIT(S)
     Route: 058
     Dates: end: 20091216
  2. ALL OTHER THERAPEUTIC PRODUCTS [Concomitant]
     Indication: HEPATIC ENCEPHALOPATHY
     Route: 065
     Dates: start: 20091201, end: 20091208
  3. ALL OTHER THERAPEUTIC PRODUCTS [Concomitant]
     Route: 065
     Dates: start: 20091209, end: 20091215
  4. GLIPIZIDE [Suspect]
     Indication: TYPE 2 DIABETES MELLITUS
     Route: 065
     Dates: start: 20090504, end: 20091216
  5. ACTOS [Suspect]
     Indication: TYPE 2 DIABETES MELLITUS
     Route: 065
     Dates: start: 20080917, end: 20091216
  6. INSULIN [Suspect]
  7. PRAVACHOL [Concomitant]
     Dates: start: 20090930
  8. SPIRONOLACTONE [Concomitant]
     Dates: start: 20080917, end: 20100115
  9. FUROSEMIDE [Concomitant]
     Dates: start: 20081002, end: 20100115
  10. OMEPRAZOLE MAGNESIUM [Concomitant]
     Dates: start: 20080917
  11. NADOLOL [Concomitant]
     Dates: start: 20081002, end: 20100115
  12. MULTI-VITAMINS [Concomitant]
     Dates: start: 20081002
  13. ASPIRIN [Concomitant]
     Dates: start: 20080917
  14. LACTULOSE [Concomitant]
     Dates: start: 20080817

REACTIONS (8)
  - CHEST PAIN [None]
  - CONFUSIONAL STATE [None]
  - DIZZINESS [None]
  - GAIT DISTURBANCE [None]
  - HEADACHE [None]
  - HYPOGLYCAEMIC UNCONSCIOUSNESS [None]
  - NERVOUSNESS [None]
  - VISION BLURRED [None]
